FAERS Safety Report 9906076 (Version 2)
Quarter: 2014Q1

REPORT INFORMATION
  Report Type: Spontaneous
  Country: US (occurrence: US)
  Receive Date: 20140218
  Receipt Date: 20140218
  Transmission Date: 20141002
  Serious: No
  Sender: FDA-Public Use
  Company Number: US-GILEAD-2011-0048326

PATIENT
  Sex: Male
  Weight: 125.9 kg

DRUGS (6)
  1. LETAIRIS [Suspect]
     Indication: PULMONARY ARTERIAL HYPERTENSION
     Dosage: 10 MG, UNK
     Route: 048
     Dates: start: 20101117
  2. LETAIRIS [Suspect]
     Dosage: UNK
     Route: 048
     Dates: start: 20120109
  3. ADCIRCA [Concomitant]
  4. TYVASO [Concomitant]
  5. LASIX                              /00032601/ [Concomitant]
  6. OXYGEN [Concomitant]

REACTIONS (5)
  - Chromaturia [Unknown]
  - Pruritus [Unknown]
  - Acne [Not Recovered/Not Resolved]
  - Dry skin [Unknown]
  - Rash pruritic [Unknown]
